FAERS Safety Report 19250506 (Version 1)
Quarter: 2021Q2

REPORT INFORMATION
  Report Type: Spontaneous
  Country: US (occurrence: US)
  Receive Date: 20210512
  Receipt Date: 20210512
  Transmission Date: 20210717
  Serious: No
  Sender: FDA-Public Use
  Company Number: US-BRISTOL-MYERS SQUIBB COMPANY-BMS-2021-046584

PATIENT
  Age: 70 Year
  Sex: Male

DRUGS (1)
  1. YERVOY [Suspect]
     Active Substance: IPILIMUMAB
     Indication: HEPATOCELLULAR CARCINOMA
     Dosage: 300 MILLIGRAM, Q3WK
     Route: 042

REACTIONS (1)
  - Drug intolerance [Unknown]
